FAERS Safety Report 20227895 (Version 1)
Quarter: 2021Q4

REPORT INFORMATION
  Report Type: Spontaneous
  Country: DE (occurrence: DE)
  Receive Date: 20211224
  Receipt Date: 20211224
  Transmission Date: 20220304
  Serious: Yes (Hospitalization)
  Sender: FDA-Public Use
  Company Number: DE-ADRED-06884-01

PATIENT
  Age: 45 Year
  Sex: Female
  Weight: 72 kg

DRUGS (5)
  1. PREDNISOLONE [Suspect]
     Active Substance: PREDNISOLONE
     Dosage: 2 DOSAGE FORMS DAILY; 20 MG, 2-0-0-0
     Route: 048
  2. NICOTINELL [Concomitant]
     Active Substance: NICOTINE
     Dosage: NEED, NICOTINELL 17,5MG 7MG/D
     Route: 062
  3. ZOPICLONE [Concomitant]
     Active Substance: ZOPICLONE
     Dosage: 7.5 MG, AS NEEDED
     Route: 048
  4. PANTOPRAZOLE SODIUM [Concomitant]
     Active Substance: PANTOPRAZOLE SODIUM
     Dosage: 40 MILLIGRAM DAILY; 1-0-0-0
     Route: 048
  5. SULFAMETHOXAZOLE\TRIMETHOPRIM [Concomitant]
     Active Substance: SULFAMETHOXAZOLE\TRIMETHOPRIM
     Dosage: 960 MG, 3X PER WEEK, TABLETS
     Route: 048

REACTIONS (3)
  - Pyrexia [Unknown]
  - Pruritus [Unknown]
  - Dyspnoea [Unknown]
